FAERS Safety Report 4357342-8 (Version None)
Quarter: 2004Q2

REPORT INFORMATION
  Report Type: 
  Country: None (occurrence: None)
  Receive Date: 20040511
  Receipt Date: 20040511
  Transmission Date: 20050107
  Serious: Yes (Other)
  Sender: FDA-Public Use
  Company Number: None

PATIENT
  Age: 29 Year
  Sex: Female

DRUGS (13)
  1. BUSPAR [Suspect]
     Indication: BIPOLAR DISORDER
     Dosage: 15 MG PO BID
     Route: 048
     Dates: start: 20020901
  2. BUSPAR [Suspect]
     Indication: BIPOLAR II DISORDER
     Dosage: 15 MG PO BID
     Route: 048
     Dates: start: 20020901
  3. BUSPAR [Suspect]
     Indication: SEASONAL AFFECTIVE DISORDER
     Dosage: 15 MG PO BID
     Route: 048
     Dates: start: 20020901
  4. BUSPAR [Suspect]
     Indication: BIPOLAR DISORDER
     Dosage: 15 MG PO BID
     Route: 048
     Dates: start: 20030501
  5. BUSPAR [Suspect]
     Indication: BIPOLAR II DISORDER
     Dosage: 15 MG PO BID
     Route: 048
     Dates: start: 20030501
  6. BUSPAR [Suspect]
     Indication: SEASONAL AFFECTIVE DISORDER
     Dosage: 15 MG PO BID
     Route: 048
     Dates: start: 20030501
  7. BUSPAR [Suspect]
     Indication: BIPOLAR DISORDER
     Dosage: 15 MG PO BID
     Route: 048
     Dates: start: 20040401
  8. BUSPAR [Suspect]
     Indication: BIPOLAR II DISORDER
     Dosage: 15 MG PO BID
     Route: 048
     Dates: start: 20040401
  9. BUSPAR [Suspect]
     Indication: SEASONAL AFFECTIVE DISORDER
     Dosage: 15 MG PO BID
     Route: 048
     Dates: start: 20040401
  10. PROZAC [Concomitant]
  11. LITHOBID [Concomitant]
  12. AMITRIPTYLINE HCL [Concomitant]
  13. SEROQUEL [Concomitant]

REACTIONS (2)
  - MIGRAINE [None]
  - PHARMACEUTICAL PRODUCT COMPLAINT [None]
